FAERS Safety Report 7650717-0 (Version None)
Quarter: 2011Q3

REPORT INFORMATION
  Report Type: 
  Country: None (occurrence: None)
  Receive Date: 20110802
  Receipt Date: 20110727
  Transmission Date: 20111222
  Serious: Yes (Hospitalization)
  Sender: FDA-Public Use
  Company Number: CA-ABBOTT-11P-028-0842097-00

PATIENT
  Sex: Male
  Weight: 65.376 kg

DRUGS (7)
  1. PROGRAF [Concomitant]
     Indication: LIVER TRANSPLANT
     Route: 048
     Dates: start: 20040101
  2. LOMOTIL [Concomitant]
     Indication: CHANGE OF BOWEL HABIT
     Dosage: 2.5/0.025 MG
     Route: 048
     Dates: start: 20080101
  3. RATIO-CLOBETASOL AND MENTHOL CREAM [Concomitant]
     Indication: RASH
     Dosage: UNKNOWN
     Route: 061
     Dates: start: 20110101
  4. VITAMIN A [Concomitant]
     Indication: COLECTOMY
     Route: 048
     Dates: start: 20110701
  5. VITAMIN D [Concomitant]
     Indication: COLECTOMY
     Dates: start: 20110701
  6. VITAMIN E [Concomitant]
     Indication: COLECTOMY
     Route: 048
     Dates: start: 20110701
  7. HUMIRA [Suspect]
     Indication: CROHN'S DISEASE
     Route: 058
     Dates: start: 20110428

REACTIONS (8)
  - HYPERAESTHESIA [None]
  - CHEST X-RAY ABNORMAL [None]
  - PAIN [None]
  - PYREXIA [None]
  - CHILLS [None]
  - LUNG INFECTION [None]
  - ACNE [None]
  - PRURITUS [None]
